FAERS Safety Report 13410168 (Version 2)
Quarter: 2017Q2

REPORT INFORMATION
  Report Type: Report from Study
  Country: AR (occurrence: AR)
  Receive Date: 20170406
  Receipt Date: 20170419
  Transmission Date: 20170830
  Serious: Yes (Other)
  Sender: FDA-Public Use
  Company Number: PHHY2017AR051349

PATIENT
  Age: 73 Year
  Sex: Female

DRUGS (3)
  1. EXFORGE [Suspect]
     Active Substance: AMLODIPINE BESYLATE\VALSARTAN
     Indication: HYPERTENSION
     Dosage: 1 DF (AMLODIPINE 5 MG/HYDROCHLOROTHIAZIDE 25 MG/VALSARTAN 160 MG)
     Route: 065
  2. EXFORGE [Suspect]
     Active Substance: AMLODIPINE BESYLATE\VALSARTAN
     Dosage: 1 DF  (AMLODIPINE 10 MG/HYDROCHLOROTHIAZIDE 25 MG/VALSARTAN 160 MG), (THREE TIMES PER WEEK)
     Route: 065
  3. EXFORGE [Suspect]
     Active Substance: AMLODIPINE BESYLATE\VALSARTAN
     Indication: ARRHYTHMIA
     Dosage: 0.5 DF, UNK SOMETIMES HALF TABLET (AMLODIPINE 5 MG, VALSARTAN 160 MG, HYDROCHOLORTHIAZIDE UNKNOWN)
     Route: 065

REACTIONS (6)
  - Blood pressure increased [Recovering/Resolving]
  - Neck pain [Recovering/Resolving]
  - Fear [Not Recovered/Not Resolved]
  - Panic disorder [Not Recovered/Not Resolved]
  - Wrong technique in product usage process [Not Recovered/Not Resolved]
  - Aggression [Not Recovered/Not Resolved]

NARRATIVE: CASE EVENT DATE: 20170417
